FAERS Safety Report 9631135 (Version 2)
Quarter: 2014Q1

REPORT INFORMATION
  Report Type: Spontaneous
  Country: FR (occurrence: None)
  Receive Date: 20131015
  Receipt Date: 20140210
  Transmission Date: 20141002
  Serious: Yes (Other)
  Sender: FDA-Public Use
  Company Number: AXC-2013-000527

PATIENT
  Age: 45 Year
  Sex: Male

DRUGS (2)
  1. PYLERA [Suspect]
     Indication: HELICOBACTER TEST POSITIVE
     Dates: start: 2013, end: 20130414
  2. INEXIUM /01479302/ (ESOMEPRAZOLE MAGNESIUM) (ESOMEPRAZOLE MAGNESIUM) [Concomitant]
     Dates: start: 20130327, end: 20130425

REACTIONS (8)
  - Jaundice [None]
  - Transmission of an infectious agent via product [None]
  - Hepatitis [None]
  - Cholestasis [None]
  - Hepatic steatosis [None]
  - Cholelithiasis [None]
  - Hepatitis A antibody positive [None]
  - Hepatitis B surface antibody positive [None]
